FAERS Safety Report 22158747 (Version 1)
Quarter: 2023Q1

REPORT INFORMATION
  Report Type: Spontaneous
  Country: US (occurrence: US)
  Receive Date: 20230331
  Receipt Date: 20230331
  Transmission Date: 20230417
  Serious: No
  Sender: FDA-Public Use
  Company Number: US-TOLMAR, INC.-23US039791

PATIENT
  Age: 8 Year
  Sex: Female

DRUGS (5)
  1. FENSOLVI [Suspect]
     Active Substance: LEUPROLIDE ACETATE
     Indication: Precocious puberty
     Dosage: 45 MILLIGRAM
     Route: 058
     Dates: start: 20230201
  2. FENSOLVI [Suspect]
     Active Substance: LEUPROLIDE ACETATE
     Dosage: 45 MILLIGRAM
     Route: 058
     Dates: start: 20220224
  3. FENSOLVI [Suspect]
     Active Substance: LEUPROLIDE ACETATE
     Dosage: 45 MILLIGRAM
     Route: 058
  4. LUPRON [Concomitant]
     Active Substance: LEUPROLIDE ACETATE
     Indication: Product used for unknown indication
     Dosage: UNK
  5. UNSPECIFIED INGREDIENT [Concomitant]
     Active Substance: UNSPECIFIED INGREDIENT
     Indication: Product used for unknown indication

REACTIONS (3)
  - Injection site infection [Unknown]
  - Incorrect dose administered [Unknown]
  - Injection site pain [Unknown]

NARRATIVE: CASE EVENT DATE: 20230201
